FAERS Safety Report 14388568 (Version 1)
Quarter: 2018Q1

REPORT INFORMATION
  Report Type: Spontaneous
  Country: US (occurrence: US)
  Receive Date: 20180115
  Receipt Date: 20180115
  Transmission Date: 20180509
  Serious: No
  Sender: FDA-Public Use
  Company Number: US-AMNEAL PHARMACEUTICALS-2017AMN00239

PATIENT
  Sex: Male
  Weight: 86.17 kg

DRUGS (13)
  1. CYCLOBENZAPRINE HCL [Concomitant]
     Active Substance: CYCLOBENZAPRINE HYDROCHLORIDE
     Indication: MUSCLE SPASMS
     Dosage: 10 MG, 3X/DAY
  2. NICOTINE TRANSDERMAL SYSTEM [Concomitant]
     Active Substance: NICOTINE
     Dosage: 1 UNK, 1X/DAY (1 PATCH)
  3. IBUPROFEN. [Suspect]
     Active Substance: IBUPROFEN
  4. OMEPRAZOLE. [Concomitant]
     Active Substance: OMEPRAZOLE
  5. LYRICA [Concomitant]
     Active Substance: PREGABALIN
     Dosage: 200 MG, 3X/DAY
  6. AEROSOIN [Concomitant]
     Indication: WHEEZING
     Dosage: 1-2 PUFFS EVERY 4-6 HOURS
     Route: 045
  7. TADALAFIL [Concomitant]
     Active Substance: TADALAFIL
     Indication: ERECTILE DYSFUNCTION
     Dosage: 10 MG, UNK
  8. IBUPROFEN. [Concomitant]
     Active Substance: IBUPROFEN
  9. CENTRIUM SILVER ADULT 50 [Concomitant]
     Dosage: UNK, 1X/DAY (BEFORE MEAL)
     Route: 048
  10. FISH OIL [Concomitant]
     Active Substance: FISH OIL
  11. VALTREX [Concomitant]
     Active Substance: VALACYCLOVIR HYDROCHLORIDE
     Indication: ORAL HERPES
     Dosage: 500 MG, 2X/DAY
  12. DULOXETINE HCL [Concomitant]
     Active Substance: DULOXETINE HYDROCHLORIDE
     Dosage: 60 MG, 1X/DAY
     Route: 048
  13. HYDROCODONE-APAP [Concomitant]
     Active Substance: ACETAMINOPHEN\HYDROCODONE
     Dosage: UNK, 4X/DAY (3-325MG) EVERY 6 HOURS

REACTIONS (2)
  - Drug ineffective [Not Recovered/Not Resolved]
  - Pain [Not Recovered/Not Resolved]
